FAERS Safety Report 9345645 (Version 1)
Quarter: 2013Q2

REPORT INFORMATION
  Report Type: Spontaneous
  Country: US (occurrence: US)
  Receive Date: 20130613
  Receipt Date: 20130613
  Transmission Date: 20140414
  Serious: No
  Sender: FDA-Public Use
  Company Number: US-BAYER-2013-070787

PATIENT
  Age: 16 Year
  Sex: Male
  Weight: 47.62 kg

DRUGS (3)
  1. ALEVE CAPLET [Suspect]
     Indication: HEADACHE
     Route: 048
  2. ALEVE CAPLET [Suspect]
     Indication: HEADACHE
     Dosage: 6 DF, UNK
     Route: 048
     Dates: start: 20130603
  3. PREVACID [Concomitant]

REACTIONS (2)
  - Incorrect dose administered [None]
  - Drug ineffective [None]
